FAERS Safety Report 5994245-7 (Version None)
Quarter: 2008Q4

REPORT INFORMATION
  Report Type: 
  Country: None (occurrence: None)
  Receive Date: 20081212
  Receipt Date: 20080904
  Transmission Date: 20090506
  Serious: No
  Sender: FDA-Public Use
  Company Number: US-ABBOTT-08P-163-0474462-00

PATIENT
  Sex: Female
  Weight: 56.75 kg

DRUGS (4)
  1. HUMIRA [Suspect]
     Indication: PSORIASIS
     Route: 058
     Dates: start: 20080701
  2. CELECOXIB [Concomitant]
     Indication: DEPRESSION
     Route: 048
     Dates: start: 20080701
  3. BIRTH CONTROL [Concomitant]
     Indication: PROPHYLAXIS
     Route: 048
  4. VITAMINS [Concomitant]
     Indication: VITAMIN SUPPLEMENTATION
     Dosage: DAILY
     Route: 048

REACTIONS (6)
  - FATIGUE [None]
  - INFLUENZA LIKE ILLNESS [None]
  - MUSCULOSKELETAL PAIN [None]
  - NECK PAIN [None]
  - PYREXIA [None]
  - RESPIRATORY TRACT CONGESTION [None]
